FAERS Safety Report 15781349 (Version 1)
Quarter: 2018Q4

REPORT INFORMATION
  Report Type: Spontaneous
  Country: US (occurrence: US)
  Receive Date: 20181212
  Receipt Date: 20181212
  Transmission Date: 20190205
  Serious: Yes (Life-Threatening, Other)
  Sender: FDA-Public Use
  Company Number: None

PATIENT
  Age: 73 Year
  Sex: Female
  Weight: 70.31 kg

DRUGS (1)
  1. CORDARONE [Suspect]
     Active Substance: AMIODARONE HYDROCHLORIDE
     Indication: ATRIAL FIBRILLATION
     Dosage: NOT SURE X1 DOSE IVP
     Route: 042

REACTIONS (12)
  - Chest pain [None]
  - Hypersensitivity [None]
  - Cyanosis [None]
  - Diarrhoea [None]
  - Eye swelling [None]
  - Musculoskeletal stiffness [None]
  - Swelling face [None]
  - Dysstasia [None]
  - Back pain [None]
  - Dyspnoea [None]
  - Hyperhidrosis [None]
  - Pain in extremity [None]

NARRATIVE: CASE EVENT DATE: 20181112
